FAERS Safety Report 10156546 (Version 3)
Quarter: 2015Q4

REPORT INFORMATION
  Report Type: Report from Study
  Country: US (occurrence: US)
  Receive Date: 20140507
  Receipt Date: 20151008
  Transmission Date: 20160304
  Serious: Yes (Hospitalization)
  Sender: FDA-Public Use
  Company Number: US-ROCHE-1365457

PATIENT
  Age: 57 Year
  Sex: Male

DRUGS (6)
  1. INCIVEK [Suspect]
     Active Substance: TELAPREVIR
     Indication: HEPATITIS C
     Route: 065
  2. PERCOCET [Concomitant]
     Active Substance: ACETAMINOPHEN\OXYCODONE HYDROCHLORIDE
     Indication: PAIN
  3. OXYCODONE [Concomitant]
     Active Substance: OXYCODONE
     Indication: PAIN
  4. PEGASYS [Suspect]
     Active Substance: PEGINTERFERON ALFA-2A
     Indication: HEPATITIS C
     Route: 058
  5. COPEGUS [Suspect]
     Active Substance: RIBAVIRIN
     Indication: HEPATITIS C
     Dosage: 400 MG AM AND 600 MG PM
     Route: 065
     Dates: start: 201404
  6. REBETOL [Concomitant]
     Active Substance: RIBAVIRIN
     Route: 065

REACTIONS (22)
  - Anger [Unknown]
  - Visual impairment [Unknown]
  - Tooth fracture [Unknown]
  - Platelet count decreased [Unknown]
  - Malaise [Unknown]
  - Gingival bleeding [Unknown]
  - Haemorrhoids [Unknown]
  - Eye pain [Unknown]
  - Limb injury [Unknown]
  - Hepatitis [Unknown]
  - Gingival pain [Unknown]
  - Cardiac murmur [Unknown]
  - Tooth socket haemorrhage [Unknown]
  - Urinary tract infection [Unknown]
  - Tooth loss [Unknown]
  - Nausea [Unknown]
  - Increased tendency to bruise [Unknown]
  - Headache [Unknown]
  - Ammonia increased [Unknown]
  - Pruritus [Unknown]
  - Rash [Unknown]
  - Pyrexia [Unknown]

NARRATIVE: CASE EVENT DATE: 20140418
